FAERS Safety Report 11224062 (Version 1)
Quarter: 2015Q2

REPORT INFORMATION
  Report Type: Spontaneous
  Country: GB (occurrence: None)
  Receive Date: 20150625
  Receipt Date: 20150625
  Transmission Date: 20150821
  Serious: Yes (Hospitalization, Other)
  Sender: FDA-Public Use
  Company Number: 2015FE02082

PATIENT
  Age: 15 Year
  Sex: Male
  Weight: 54.8 kg

DRUGS (1)
  1. ZOMACTON [Suspect]
     Active Substance: SOMATROPIN
     Indication: DELAYED PUBERTY
     Route: 058
     Dates: start: 201304, end: 20150116

REACTIONS (3)
  - Essential hypertension [None]
  - Proteinuria [None]
  - Headache [None]

NARRATIVE: CASE EVENT DATE: 201404
